FAERS Safety Report 10886162 (Version 1)
Quarter: 2015Q1

REPORT INFORMATION
  Report Type: Spontaneous
  Country: US (occurrence: None)
  Receive Date: 20150227
  Receipt Date: 20150227
  Transmission Date: 20150721
  Serious: Yes (Other)
  Sender: FDA-Public Use
  Company Number: None

PATIENT
  Age: 69 Year
  Sex: Female

DRUGS (3)
  1. LIDOCAINE. [Concomitant]
     Active Substance: LIDOCAINE
  2. DEPO-MEDROL [Suspect]
     Active Substance: METHYLPREDNISOLONE ACETATE
     Indication: OSTEOARTHRITIS
     Dosage: MIXED TOGETHER?INTRA-OCULAR KNEE
     Route: 013
     Dates: start: 20150217
  3. LIDOCAINE. [Suspect]
     Active Substance: LIDOCAINE
     Indication: OSTEOARTHRITIS
     Route: 013
     Dates: start: 20150217

REACTIONS (3)
  - Injection site joint infection [None]
  - Urticaria [None]
  - Cellulitis [None]

NARRATIVE: CASE EVENT DATE: 20150217
